FAERS Safety Report 17878375 (Version 1)
Quarter: 2020Q2

REPORT INFORMATION
  Report Type: Report from Study
  Country: RO (occurrence: RO)
  Receive Date: 20200610
  Receipt Date: 20200610
  Transmission Date: 20200714
  Serious: Yes (Hospitalization)
  Sender: FDA-Public Use
  Company Number: RO-ROCHE-2614700

PATIENT
  Sex: Female
  Weight: 64.2 kg

DRUGS (1)
  1. MABTHERA [Suspect]
     Active Substance: RITUXIMAB
     Indication: GASTRIC CANCER
     Route: 042

REACTIONS (2)
  - Pain [Unknown]
  - Confusional state [Unknown]
